FAERS Safety Report 17767947 (Version 1)
Quarter: 2020Q2

REPORT INFORMATION
  Report Type: Spontaneous
  Country: JP (occurrence: JP)
  Receive Date: 20200511
  Receipt Date: 20200511
  Transmission Date: 20200714
  Serious: Yes (Other)
  Sender: FDA-Public Use
  Company Number: JP-PFIZER INC-2020123691

PATIENT
  Age: 54 Year
  Sex: Female

DRUGS (2)
  1. OXALIPLATIN 100MG/20ML HOSPIRA [Suspect]
     Active Substance: OXALIPLATIN
     Indication: COLON CANCER
     Dosage: 140 MG, 1X/DAY
     Dates: start: 20190510, end: 20190510
  2. XELODA [Concomitant]
     Active Substance: CAPECITABINE
     Dosage: 300 MG, DAILY

REACTIONS (5)
  - Mechanical ileus [Unknown]
  - Optic nerve disorder [Unknown]
  - Cataract nuclear [Unknown]
  - Glaucoma [Unknown]
  - Visual acuity reduced [Unknown]

NARRATIVE: CASE EVENT DATE: 20190519
